FAERS Safety Report 7220016-X (Version None)
Quarter: 2011Q1

REPORT INFORMATION
  Report Type: 
  Country: None (occurrence: None)
  Receive Date: 20110111
  Receipt Date: 20091116
  Transmission Date: 20110831
  Serious: No
  Sender: FDA-Public Use
  Company Number: US-PFIZER INC-2009298909

PATIENT
  Age: 68 Year
  Sex: Male

DRUGS (4)
  1. VIAGRA [Suspect]
     Indication: ERECTILE DYSFUNCTION
     Dosage: UNK
     Route: 065
  2. CARDIZEM [Concomitant]
  3. ATENOLOL [Suspect]
     Dosage: UNK
     Route: 065
  4. UROXATRAL [Suspect]
     Indication: BENIGN PROSTATIC HYPERPLASIA
     Dosage: 10 MG, DAILY
     Route: 048
     Dates: start: 20090603

REACTIONS (5)
  - DIZZINESS [None]
  - DISTURBANCE IN SEXUAL AROUSAL [None]
  - MALE SEXUAL DYSFUNCTION [None]
  - SEMEN VOLUME DECREASED [None]
  - DRUG INEFFECTIVE [None]
